FAERS Safety Report 7752158-4 (Version None)
Quarter: 2011Q3

REPORT INFORMATION
  Report Type: 
  Country: None (occurrence: None)
  Receive Date: 20110915
  Receipt Date: 20110912
  Transmission Date: 20111222
  Serious: Yes (Other)
  Sender: FDA-Public Use
  Company Number: US-PFIZER INC-2011143869

PATIENT
  Sex: Female

DRUGS (3)
  1. ZOLOFT [Concomitant]
     Indication: DEPRESSION
  2. CHANTIX [Suspect]
     Indication: SMOKING CESSATION THERAPY
     Dosage: UNK
     Dates: start: 20070111, end: 20070211
  3. ZOLOFT [Concomitant]
     Indication: ANXIETY
     Dosage: UNK
     Dates: start: 20040101, end: 20100101

REACTIONS (1)
  - DEPRESSION [None]
